FAERS Safety Report 8936999 (Version 2)
Quarter: 2013Q3

REPORT INFORMATION
  Report Type: Report from Study
  Country: JP (occurrence: JP)
  Receive Date: 20121130
  Receipt Date: 20130712
  Transmission Date: 20140515
  Serious: Yes (Hospitalization)
  Sender: FDA-Public Use
  Company Number: JP-009507513-2012SP014403

PATIENT
  Age: 57 Year
  Sex: Female
  Weight: 43 kg

DRUGS (78)
  1. PEGINTERFERON ALFA-2B [Suspect]
     Indication: CHRONIC HEPATITIS C
     Dosage: 1.5 ?G/KG, QW
     Route: 058
     Dates: start: 20120126, end: 20120126
  2. PEGINTERFERON ALFA-2B [Suspect]
     Dosage: 30 ?G, QW
     Route: 058
     Dates: start: 20120202, end: 20120202
  3. PEGINTERFERON ALFA-2B [Suspect]
     Dosage: 50 ?G, QW
     Route: 058
     Dates: start: 20120209, end: 20120209
  4. PEGINTERFERON ALFA-2B [Suspect]
     Dosage: 25 MICROGRAM, QW
     Route: 058
     Dates: start: 20120216, end: 20120308
  5. PEGINTERFERON ALFA-2B [Suspect]
     Dosage: 50 ?G, QW
     Route: 058
     Dates: start: 20120315, end: 20120315
  6. PEGINTERFERON ALFA-2B [Suspect]
     Dosage: 1.5 MICROGRAM PER KILOGRAM, QW
     Route: 058
     Dates: start: 20120322, end: 20120419
  7. REBETOL [Suspect]
     Indication: CHRONIC HEPATITIS C
     Dosage: BID, CUMULATIVE DOSE:1800 MG
     Route: 048
     Dates: start: 20120126, end: 20120201
  8. REBETOL [Suspect]
     Dosage: BID, CUMULATIVE DOSE:1800 MG
     Route: 048
     Dates: start: 20120202, end: 20120307
  9. REBETOL [Suspect]
     Dosage: BID, CUMULATIVE DOSE:1800 MG
     Route: 048
     Dates: start: 20120308, end: 20120311
  10. REBETOL [Suspect]
     Dosage: BID, CUMULATIVE DOSE:1800 MG
     Route: 048
     Dates: start: 20120316, end: 20120328
  11. REBETOL [Suspect]
     Dosage: 400 MG, QD
     Route: 048
     Dates: start: 20120329, end: 20120427
  12. TELAVIC [Suspect]
     Indication: CHRONIC HEPATITIS C
     Dosage: TID, CUMULATIVE DOSE:6750 MG
     Route: 048
     Dates: start: 20120126, end: 20120311
  13. TELAVIC [Suspect]
     Dosage: TID, CUMULATIVE DOSE:6750MG
     Route: 048
     Dates: start: 20120312, end: 20120419
  14. PREDNISOLONE [Suspect]
     Indication: ADVERSE EVENT
     Dosage: UNK, TID
     Route: 048
     Dates: start: 20120308, end: 20120311
  15. PREDNISOLONE [Suspect]
     Dosage: UNK, TID
     Route: 048
     Dates: start: 20120312, end: 20120314
  16. PREDNISOLONE [Suspect]
     Dosage: UNK, TID
     Route: 048
     Dates: start: 20120315, end: 20120320
  17. PREDNISOLONE [Suspect]
     Dosage: UNK, TID
     Route: 048
     Dates: start: 20120321, end: 20120321
  18. PREDNISOLONE [Suspect]
     Dosage: UNK, TID
     Route: 048
     Dates: start: 20120322, end: 20120324
  19. PREDNISOLONE [Suspect]
     Dosage: UNK, TID
     Route: 048
     Dates: start: 20120326, end: 20120328
  20. PREDNISOLONE [Suspect]
     Dosage: UNK, TID
     Route: 048
     Dates: start: 20120329, end: 20120404
  21. PREDNISOLONE [Suspect]
     Dosage: UNK,TID
     Route: 048
     Dates: start: 20120405, end: 20120406
  22. PREDNISOLONE [Suspect]
     Dosage: UNK, TID
     Route: 048
     Dates: start: 20120407, end: 20120407
  23. PREDNISOLONE [Suspect]
     Dosage: UNK,TID
     Route: 048
     Dates: start: 20120408, end: 20120410
  24. PREDNISOLONE [Suspect]
     Dosage: UNK,TID
     Route: 048
     Dates: start: 20120412, end: 20120418
  25. PREDNISOLONE [Suspect]
     Dosage: 5 MG,TID
     Route: 048
     Dates: start: 20120419, end: 20120425
  26. PREDNISOLONE [Suspect]
     Dosage: 5 MG, BID
     Route: 048
     Dates: start: 20120426, end: 20120508
  27. PREDNISOLONE [Suspect]
     Dosage: 5 MG, QD
     Route: 048
     Dates: start: 20120509, end: 20120515
  28. PREDNISOLONE [Suspect]
     Dosage: 10 MG,QD
     Route: 048
     Dates: start: 20120516, end: 20120516
  29. PREDNISOLONE [Suspect]
     Dosage: 5 MG,QD
     Route: 048
     Dates: start: 20120517, end: 20120521
  30. PROMAC (POLAPREZINC) [Concomitant]
     Dosage: FORMULATION-GRA
     Route: 048
     Dates: start: 20120301, end: 20120307
  31. NAUZELIN [Concomitant]
     Dosage: 10 MG, TID
     Route: 048
     Dates: start: 20120301, end: 20120321
  32. TALION (BEPOTASTINE BESYLATE) [Concomitant]
     Dosage: TALION OD
     Route: 048
     Dates: start: 20120302, end: 20120307
  33. FULMETA [Concomitant]
     Dosage: 5 G, QD
     Route: 061
     Dates: start: 20120302, end: 20120302
  34. ELOCON [Concomitant]
     Dosage: 5 G, QD
     Route: 061
     Dates: start: 20120318, end: 20120318
  35. TAKEPRON [Concomitant]
     Indication: PROPHYLAXIS
     Dosage: 1DF QD
     Route: 048
     Dates: start: 20120308, end: 20120318
  36. TAKEPRON [Concomitant]
     Dosage: 2 DF, QD
     Route: 048
     Dates: start: 20120319, end: 20120321
  37. TAKEPRON [Concomitant]
     Dosage: 1 DF, QD
     Route: 048
     Dates: start: 20120322, end: 20120328
  38. TAKEPRON [Concomitant]
     Dosage: 2 DF, QD
     Route: 048
     Dates: start: 20120329, end: 20120401
  39. TAKEPRON [Concomitant]
     Dosage: 1 DF, QD
     Route: 048
     Dates: start: 20120402, end: 20120425
  40. TAKEPRON [Concomitant]
     Dosage: 1 DF, QD
     Route: 048
     Dates: start: 20120427, end: 20120515
  41. TAKEPRON [Concomitant]
     Dosage: 2 DF, QD
     Route: 048
     Dates: start: 20120516, end: 20120516
  42. TAKEPRON [Concomitant]
     Dosage: 1 DF, QD
     Route: 048
     Dates: start: 20120517, end: 20120612
  43. DERMOVATE [Concomitant]
     Dosage: DOSE UNIT-UNKNOWN
     Route: 061
     Dates: start: 20120308, end: 20120308
  44. DERMOVATE [Concomitant]
     Dosage: 3 DF, QD
     Route: 061
     Dates: start: 20120309, end: 20120309
  45. DERMOVATE [Concomitant]
     Dosage: 4 DF, QD
     Route: 061
     Dates: start: 20120310, end: 20120310
  46. DERMOVATE [Concomitant]
     Dosage: 1 DF, QD
     Route: 061
     Dates: start: 20120314, end: 20120314
  47. DERMOVATE [Concomitant]
     Dosage: 6 DF,QD
     Route: 061
     Dates: start: 20120317, end: 20120317
  48. DERMOVATE [Concomitant]
     Dosage: 6 DF, QD
     Route: 061
     Dates: start: 20120321, end: 20120321
  49. DERMOVATE [Concomitant]
     Dosage: 6 DF, QD
     Route: 061
     Dates: start: 20120424, end: 20120424
  50. DERMOVATE [Concomitant]
     Dosage: 10 DF, QD
     Route: 061
     Dates: start: 20120326, end: 20120326
  51. KINDAVATE [Concomitant]
     Dosage: DOSE UNIT-UNKNOWN
     Route: 061
     Dates: start: 20120308, end: 20120308
  52. KINDAVATE [Concomitant]
     Dosage: 1 UNK, UNK
     Route: 061
     Dates: start: 20120314, end: 20120314
  53. NERISONA [Concomitant]
     Dosage: 1DF, QD
     Route: 051
     Dates: start: 20120308, end: 20120308
  54. NERISONA [Concomitant]
     Dosage: 1 DF, QD
     Route: 051
     Dates: start: 20120311, end: 20120311
  55. NERISONA [Concomitant]
     Dosage: 1 DF, QD
     Route: 051
     Dates: start: 20120314, end: 20120314
  56. KENALOG [Concomitant]
     Dosage: DOSE UNIT-UNKNOWN
     Route: 061
     Dates: start: 20120308, end: 20120308
  57. MYSLEE [Concomitant]
     Indication: INSOMNIA
     Dosage: 5 MG, QD
     Route: 048
     Dates: start: 20120308, end: 20120309
  58. MYSLEE [Concomitant]
     Dosage: 5 MG, QD
     Route: 048
     Dates: start: 20120311, end: 20120404
  59. MYSLEE [Concomitant]
     Dosage: 10 MG, QD
     Route: 048
     Dates: start: 20120405, end: 20120405
  60. MYSLEE [Concomitant]
     Dosage: 5 MG, QD
     Route: 048
     Dates: start: 20120406, end: 20120501
  61. MYSLEE [Concomitant]
     Dosage: 5 MG,QD
     Route: 048
     Dates: start: 20120505, end: 20120511
  62. EKSALB [Concomitant]
     Dosage: QD, DOSE UNIT-UNKNOWN, DRUG FORM-EXT
     Route: 051
     Dates: start: 20120324, end: 20120324
  63. RIVOTRIL [Concomitant]
     Dosage: TID, DRUG FORM-FGR
     Route: 048
     Dates: start: 20120327, end: 20120402
  64. RIVOTRIL [Concomitant]
     Dosage: TID,FORMULATION:  FGR,DAILY DOSE UNKNOWN
     Route: 048
     Dates: start: 20120403, end: 20120411
  65. RIVOTRIL [Concomitant]
     Dosage: TID, FORMULATION:  FGR,DAILY DOSE UNKNOWN
     Route: 048
     Dates: start: 20120412, end: 20120412
  66. RIVOTRIL [Concomitant]
     Dosage: TID, FORMULATION:  FGR,DAILY DOSE UNKNOWN
     Route: 048
     Dates: start: 20120413, end: 20120429
  67. ALMARL [Concomitant]
     Dosage: 5 MG,SEPARATE NUMBER :2
     Route: 048
     Dates: start: 20120413, end: 20120429
  68. CALONAL [Concomitant]
     Indication: PYREXIA
     Dosage: DRUG FORM-FGR
     Route: 048
     Dates: start: 20120419, end: 20120428
  69. LASIX (FUROSEMIDE) [Concomitant]
     Dosage: 20 MG, QD
     Route: 048
     Dates: start: 20120423, end: 20120516
  70. CYMBALTA [Concomitant]
     Dosage: 20 MG, QD
     Route: 048
     Dates: start: 20120427, end: 20120429
  71. [THERAPY UNSPECIFIED] [Concomitant]
     Dosage: 0.25 G, QD
     Route: 065
     Dates: start: 20120308, end: 20120315
  72. [THERAPY UNSPECIFIED] [Concomitant]
     Dosage: 0.5 G, TID
     Route: 065
     Dates: start: 20120419, end: 20120425
  73. [THERAPY UNSPECIFIED] [Concomitant]
     Dosage: 160 G,QD
     Route: 061
     Dates: start: 20120419, end: 20120419
  74. [THERAPY UNSPECIFIED] [Concomitant]
     Dosage: 160 G, QD
     Route: 061
     Dates: start: 20120426, end: 20120426
  75. [THERAPY UNSPECIFIED] [Concomitant]
     Dosage: 100 G, QD
     Route: 061
     Dates: start: 20120509, end: 20120509
  76. [THERAPY UNSPECIFIED] [Concomitant]
     Dosage: 100 G, QD
     Route: 061
     Dates: start: 20120516, end: 20120516
  77. [THERAPY UNSPECIFIED] [Concomitant]
     Dosage: 200 G, QD
     Route: 061
     Dates: start: 20120523, end: 20120523
  78. [THERAPY UNSPECIFIED] [Concomitant]
     Dosage: 400 G, QD
     Route: 061
     Dates: start: 20120606, end: 20120606

REACTIONS (2)
  - Toxic skin eruption [Recovering/Resolving]
  - Toxic skin eruption [Recovered/Resolved]
